FAERS Safety Report 9983953 (Version 1)
Quarter: 2014Q1

REPORT INFORMATION
  Report Type: Report from Study
  Country: US (occurrence: US)
  Receive Date: 20140307
  Receipt Date: 20140307
  Transmission Date: 20141002
  Serious: No
  Sender: FDA-Public Use
  Company Number: US-ABBVIE-13P-163-1184111-00

PATIENT
  Age: 59 Year
  Sex: Male
  Weight: 113.5 kg

DRUGS (2)
  1. HUMIRA [Suspect]
     Indication: PSORIASIS
     Route: 058
     Dates: start: 20130723, end: 201311
  2. TOPICAL PRODUCTS FOR JOINT AND MUSCULAR PAIN [Concomitant]
     Indication: PSORIASIS
     Route: 061

REACTIONS (2)
  - Psoriasis [Unknown]
  - Drug ineffective [Not Recovered/Not Resolved]
